FAERS Safety Report 8532052-1 (Version None)
Quarter: 2012Q3

REPORT INFORMATION
  Report Type: 
  Country: None (occurrence: None)
  Receive Date: 20120723
  Receipt Date: 20120717
  Transmission Date: 20120928
  Serious: Yes (Hospitalization)
  Sender: FDA-Public Use
  Company Number: US-GLAXOSMITHKLINE-A0984788A

PATIENT
  Age: 39 Year
  Sex: Female

DRUGS (5)
  1. AVANDAMET [Suspect]
     Indication: TYPE 2 DIABETES MELLITUS
     Dosage: 1TAB PER DAY
     Route: 048
  2. AVANDIA [Suspect]
     Indication: TYPE 2 DIABETES MELLITUS
     Dosage: 2MG PER DAY
     Route: 048
     Dates: end: 20100301
  3. INSULIN [Concomitant]
  4. METFORMIN HYDROCHLORIDE [Concomitant]
  5. EFFEXOR [Concomitant]

REACTIONS (13)
  - DYSPNOEA [None]
  - POST-TRAUMATIC STRESS DISORDER [None]
  - CHEST PAIN [None]
  - ELECTROCARDIOGRAM ABNORMAL [None]
  - CHEST DISCOMFORT [None]
  - DEPRESSION [None]
  - MYOCARDIAL INFARCTION [None]
  - CARDIAC FLUTTER [None]
  - FATIGUE [None]
  - SILENT MYOCARDIAL INFARCTION [None]
  - HYPERTENSION [None]
  - PALPITATIONS [None]
  - ANXIETY [None]
